FAERS Safety Report 9387130 (Version 1)
Quarter: 2013Q3

REPORT INFORMATION
  Report Type: Spontaneous
  Country: FR (occurrence: FR)
  Receive Date: 20130708
  Receipt Date: 20130708
  Transmission Date: 20140515
  Serious: Yes (Other)
  Sender: FDA-Public Use
  Company Number: FR-ROCHE-1244033

PATIENT
  Age: 40 Year
  Sex: Male

DRUGS (5)
  1. VALIUM [Suspect]
     Indication: PRODUCT USED FOR UNKNOWN INDICATION
     Route: 065
  2. VALIUM [Suspect]
     Route: 065
  3. STILNOX [Concomitant]
  4. LEXOMIL [Concomitant]
     Route: 065
  5. ATARAX (FRANCE) [Concomitant]

REACTIONS (3)
  - Hepatic cirrhosis [Unknown]
  - Blood aluminium increased [Unknown]
  - Blood copper decreased [Unknown]
